FAERS Safety Report 9746518 (Version 2)
Quarter: 2014Q1

REPORT INFORMATION
  Report Type: Spontaneous
  Country: US (occurrence: None)
  Receive Date: 20131205
  Receipt Date: 20140220
  Transmission Date: 20141002
  Serious: Yes (Hospitalization)
  Sender: FDA-Public Use
  Company Number: VAL_02839_2013

PATIENT
  Sex: Female

DRUGS (3)
  1. METOPROLOL [Suspect]
     Indication: PRODUCT USED FOR UNKNOWN INDICATION
     Dosage: (DF)
  2. TEKTURNA [Suspect]
     Indication: PRODUCT USED FOR UNKNOWN INDICATION
     Dosage: (150 MG, DF)
  3. NORVASC [Suspect]
     Indication: PRODUCT USED FOR UNKNOWN INDICATION
     Dosage: (DF)

REACTIONS (7)
  - Chest pain [None]
  - Drug ineffective [None]
  - Asthma [None]
  - Cough [None]
  - Dyspnoea [None]
  - Wheezing [None]
  - Blood pressure abnormal [None]
